FAERS Safety Report 24056441 (Version 2)
Quarter: 2024Q3

REPORT INFORMATION
  Report Type: Spontaneous
  Country: US (occurrence: US)
  Receive Date: 20240705
  Receipt Date: 20240807
  Transmission Date: 20241017
  Serious: No
  Sender: BRISTOL MYERS SQUIBB
  Company Number: US-BRISTOL-MYERS SQUIBB COMPANY-2024-107595

PATIENT
  Age: 69 Year
  Sex: Male

DRUGS (1)
  1. POMALYST [Suspect]
     Active Substance: POMALIDOMIDE
     Indication: Plasma cell myeloma
     Route: 048

REACTIONS (7)
  - Brain fog [Recovering/Resolving]
  - Insomnia [Unknown]
  - Oedema [Unknown]
  - Diarrhoea [Unknown]
  - Off label use [Unknown]
  - Peripheral swelling [Unknown]
  - Muscle spasms [Unknown]
